FAERS Safety Report 6166551-7 (Version None)
Quarter: 2009Q2

REPORT INFORMATION
  Report Type: 
  Country: None (occurrence: None)
  Receive Date: 20090422
  Receipt Date: 20090422
  Transmission Date: 20091009
  Serious: Yes (Life-Threatening, Hospitalization)
  Sender: FDA-Public Use
  Company Number: None

PATIENT
  Age: 3 Year
  Sex: Male
  Weight: 14.0615 kg

DRUGS (2)
  1. PHENOBARBITAL TAB [Suspect]
     Indication: CONVULSION
     Dosage: 1 TEASPOON EVERY 12 HOURS PO
     Route: 048
     Dates: start: 20090312, end: 20090322
  2. TEGRETOL [Suspect]
     Indication: CONVULSION
     Dosage: 1/2 TABLET TWICE DAILY PO
     Route: 048
     Dates: start: 20090319, end: 20090322

REACTIONS (4)
  - BURNS THIRD DEGREE [None]
  - CONVULSION [None]
  - MEDICATION ERROR [None]
  - RASH GENERALISED [None]
